FAERS Safety Report 24984197 (Version 1)
Quarter: 2025Q1

REPORT INFORMATION
  Report Type: Other
  Country: LB (occurrence: LB)
  Receive Date: 20250219
  Receipt Date: 20250219
  Transmission Date: 20250409
  Serious: Yes (Hospitalization)
  Sender: ANI
  Company Number: LB-ANIPHARMA-015620

PATIENT
  Age: 65 Year
  Sex: Female

DRUGS (3)
  1. MORPHINE SULFATE [Suspect]
     Active Substance: MORPHINE SULFATE
     Indication: Spinal anaesthesia
  2. BUPIVACAINE [Concomitant]
     Active Substance: BUPIVACAINE
     Indication: Spinal anaesthesia
  3. BUPIVACAINE [Concomitant]
     Active Substance: BUPIVACAINE
     Indication: Procedural pain

REACTIONS (2)
  - Pruritus [Recovered/Resolved]
  - Wrong product administered [Unknown]
